FAERS Safety Report 7504008-9 (Version None)
Quarter: 2011Q2

REPORT INFORMATION
  Report Type: 
  Country: None (occurrence: None)
  Receive Date: 20110525
  Receipt Date: 20110521
  Transmission Date: 20111010
  Serious: No
  Sender: FDA-Public Use
  Company Number: US-TEVA-283209USA

PATIENT
  Sex: Female
  Weight: 82.628 kg

DRUGS (5)
  1. FERROUS SULFATE TAB [Concomitant]
     Indication: MEDICAL DIET
  2. PLAN B ONE-STEP [Suspect]
     Indication: POST COITAL CONTRACEPTION
     Dosage: 1.5 MILLIGRAM;
     Route: 048
     Dates: start: 20110520, end: 20110520
  3. VITAMINS [Concomitant]
     Indication: MEDICAL DIET
  4. ONE A DAY [Concomitant]
     Indication: MEDICAL DIET
  5. NEXIUM [Concomitant]
     Indication: DYSPEPSIA

REACTIONS (1)
  - DRUG EXPOSURE DURING PREGNANCY [None]
